FAERS Safety Report 19279234 (Version 1)
Quarter: 2021Q2

REPORT INFORMATION
  Report Type: Spontaneous
  Country: US (occurrence: US)
  Receive Date: 20210520
  Receipt Date: 20210520
  Transmission Date: 20210717
  Serious: Yes (Disabling, Other)
  Sender: FDA-Public Use
  Company Number: US-PFIZER INC-2021541882

PATIENT
  Age: 64 Year
  Sex: Male

DRUGS (1)
  1. LYRICA [Suspect]
     Active Substance: PREGABALIN
     Dosage: UNK

REACTIONS (7)
  - Neuropathy peripheral [Unknown]
  - Ankle fracture [Unknown]
  - Limb discomfort [Unknown]
  - Diabetes mellitus [Unknown]
  - Burning sensation [Unknown]
  - Pain in extremity [Unknown]
  - Infection [Unknown]

NARRATIVE: CASE EVENT DATE: 202103
